FAERS Safety Report 6129827-5 (Version None)
Quarter: 2009Q1

REPORT INFORMATION
  Report Type: 
  Country: None (occurrence: None)
  Receive Date: 20090324
  Receipt Date: 20090320
  Transmission Date: 20090719
  Serious: Yes (Other)
  Sender: FDA-Public Use
  Company Number: PHEH2008US11101

PATIENT
  Age: 70 Year
  Sex: Male

DRUGS (3)
  1. TEKTURNA [Suspect]
     Dosage: 150 MG, UNK
  2. FLOMAX [Concomitant]
  3. HYZAAR [Concomitant]

REACTIONS (4)
  - ABASIA [None]
  - BENIGN NEOPLASM OF SPINAL CORD [None]
  - HYPOAESTHESIA [None]
  - SENSORY DISTURBANCE [None]
